FAERS Safety Report 8133624-9 (Version None)
Quarter: 2012Q1

REPORT INFORMATION
  Report Type: 
  Country: None (occurrence: None)
  Receive Date: 20120213
  Receipt Date: 20120207
  Transmission Date: 20120608
  Serious: Yes (Hospitalization)
  Sender: FDA-Public Use
  Company Number: AU-ROCHE-636027

PATIENT
  Sex: Female
  Weight: 78.7 kg

DRUGS (12)
  1. FLUOROURACIL [Suspect]
     Indication: BREAST CANCER
     Dosage: LAST DOSE PRIOR TO SAE REPORTED AS 12 MAY 2009.  DOSE FORM REPORTED AS INTRAVENOUS.
     Route: 042
     Dates: start: 20090331, end: 20090512
  2. AVASTIN [Suspect]
     Indication: BREAST CANCER
     Route: 042
  3. DOCETAXEL [Suspect]
     Indication: BREAST CANCER
     Dosage: PERMANENTLY DISCONTINUED.
     Route: 042
     Dates: start: 20090611, end: 20090630
  4. MEXAFORM [Concomitant]
  5. NEXIUM [Concomitant]
  6. DEXAMETHASONE [Concomitant]
     Dates: start: 20090616, end: 20090617
  7. AVASTIN [Suspect]
     Dosage: LAST DOSE RECEIVED PRIOR TO SAE REPORTED AS 11 JUNE 2009.  DOSE FORM REPORTED AS INTRAVENOUS.
     Route: 042
  8. EPIRUBICIN HYDROCHLORIDE [Suspect]
     Indication: BREAST CANCER
     Dosage: LAST DOSE PRIOR TO SAE REPORTED AS 12 MAY 2009.  DOSE FORM REPORTED AS INTRAVENOUS.
     Route: 042
     Dates: start: 20090331, end: 20090512
  9. CYCLOPHOSPHAMIDE [Suspect]
     Indication: BREAST CANCER
     Dosage: LAST DOSE PRIOR TO SAE REPORTED AS 12 MAY 2009.  DOSE FORM REPORTED AS INTRAVENOUS.
     Route: 042
     Dates: start: 20090331, end: 20090512
  10. MERSYNDOL [Concomitant]
     Dosage: TDD:PEN. DRUG REPORTED AS  MERSHNOMAX
  11. IBUPROFEN [Concomitant]
  12. DEXAMETHASONE [Concomitant]

REACTIONS (2)
  - GASTROINTESTINAL INFLAMMATION [None]
  - NEUTROPENIA [None]
